FAERS Safety Report 19230791 (Version 2)
Quarter: 2021Q4

REPORT INFORMATION
  Report Type: Spontaneous
  Country: US (occurrence: None)
  Receive Date: 20210507
  Receipt Date: 20211209
  Transmission Date: 20220303
  Serious: Yes (Other)
  Sender: FDA-Public Use
  Company Number: 2021A390286

PATIENT
  Age: 48 Year
  Sex: Female
  Weight: 70.3 kg

DRUGS (60)
  1. NEXIUM 24HR [Suspect]
     Active Substance: ESOMEPRAZOLE MAGNESIUM
     Indication: Gastrooesophageal reflux disease
     Route: 048
     Dates: start: 2014, end: 2017
  2. PRILOSEC [Suspect]
     Active Substance: OMEPRAZOLE MAGNESIUM
     Indication: Gastrooesophageal reflux disease
     Route: 048
     Dates: start: 2014, end: 2017
  3. PRILOSEC [Suspect]
     Active Substance: OMEPRAZOLE MAGNESIUM
     Indication: Gastrooesophageal reflux disease
     Dosage: GENERIC
     Route: 065
     Dates: start: 2016
  4. PRILOSEC OTC [Suspect]
     Active Substance: OMEPRAZOLE MAGNESIUM
     Indication: Gastrooesophageal reflux disease
     Route: 048
     Dates: start: 2014, end: 2017
  5. PREVACID [Suspect]
     Active Substance: LANSOPRAZOLE
     Indication: Gastrooesophageal reflux disease
     Route: 065
     Dates: start: 2014, end: 2017
  6. PREVACID 24 HR [Suspect]
     Active Substance: LANSOPRAZOLE
     Indication: Gastrooesophageal reflux disease
     Route: 065
     Dates: start: 2014, end: 2017
  7. PROTONIX [Suspect]
     Active Substance: PANTOPRAZOLE SODIUM
     Indication: Gastrooesophageal reflux disease
     Route: 065
     Dates: start: 2014, end: 2017
  8. PROTONIX [Suspect]
     Active Substance: PANTOPRAZOLE SODIUM
     Indication: Gastrooesophageal reflux disease
     Dosage: GENERIC
     Route: 065
  9. PRINIVIL [Concomitant]
     Active Substance: LISINOPRIL
     Indication: Blood pressure abnormal
  10. ZESTRIL [Concomitant]
     Active Substance: LISINOPRIL
     Indication: Blood pressure abnormal
  11. FUROSEMIDE [Concomitant]
     Active Substance: FUROSEMIDE
     Indication: Oedema
  12. TRAMADOL [Concomitant]
     Active Substance: TRAMADOL
     Indication: Pain
  13. ATORVASTATIN [Concomitant]
     Active Substance: ATORVASTATIN
     Indication: Blood cholesterol abnormal
  14. AMOXICILLIN [Concomitant]
     Active Substance: AMOXICILLIN
     Indication: Antibiotic level above therapeutic
  15. AZITHROMYCIN [Concomitant]
     Active Substance: AZITHROMYCIN
     Indication: Antibiotic level
  16. TYLENOL [Concomitant]
     Active Substance: ACETAMINOPHEN
     Indication: Pain
  17. FAMOTIDINE [Concomitant]
     Active Substance: FAMOTIDINE
  18. TAGAMET [Concomitant]
     Active Substance: CIMETIDINE
  19. ZANTAC [Concomitant]
     Active Substance: RANITIDINE HYDROCHLORIDE
  20. TUMS [Concomitant]
     Active Substance: CALCIUM CARBONATE
  21. ROLAIDS [Concomitant]
     Active Substance: CALCIUM CARBONATE\MAGNESIUM HYDROXIDE
  22. LEVEMIR [Concomitant]
     Active Substance: INSULIN DETEMIR
  23. DIPHENDRAMINE [Concomitant]
  24. LEXAPRO [Concomitant]
     Active Substance: ESCITALOPRAM OXALATE
  25. EFFEXOR [Concomitant]
     Active Substance: VENLAFAXINE HYDROCHLORIDE
  26. PNEUMOVAX 23 [Concomitant]
     Active Substance: PNEUMOCOCCAL VACCINE, POLYVALENT 23
  27. XANAX [Concomitant]
     Active Substance: ALPRAZOLAM
  28. PROPOFOL [Concomitant]
     Active Substance: PROPOFOL
  29. NOVOLOG [Concomitant]
     Active Substance: INSULIN ASPART
  30. SUGAMMADEX [Concomitant]
     Active Substance: SUGAMMADEX
  31. MORPHINE [Concomitant]
     Active Substance: MORPHINE
  32. LIDOCAINE [Concomitant]
     Active Substance: LIDOCAINE
  33. LOPAMIDOL [Concomitant]
  34. OXYCODONE HYDROCHLORIDE [Concomitant]
     Active Substance: OXYCODONE HYDROCHLORIDE
  35. ACEBUTOLOL/HYDROCHLOROTHIAZIDE [Concomitant]
  36. COZAAR [Concomitant]
     Active Substance: LOSARTAN POTASSIUM
  37. VOLTAREN [Concomitant]
     Active Substance: DICLOFENAC SODIUM
  38. HYDRALAZINE [Concomitant]
     Active Substance: HYDRALAZINE HYDROCHLORIDE
  39. DEXTROSE [Concomitant]
     Active Substance: DEXTROSE
  40. LOVENOX [Concomitant]
     Active Substance: ENOXAPARIN SODIUM
  41. UNISON [Concomitant]
  42. DOXYCYCLINE [Concomitant]
     Active Substance: DOXYCYCLINE
  43. BACTRIM [Concomitant]
     Active Substance: SULFAMETHOXAZOLE\TRIMETHOPRIM
  44. COREG [Concomitant]
     Active Substance: CARVEDILOL
  45. METFORMIN [Concomitant]
     Active Substance: METFORMIN HYDROCHLORIDE
  46. CIPRO [Concomitant]
     Active Substance: CIPROFLOXACIN HYDROCHLORIDE
  47. VERSED [Concomitant]
     Active Substance: MIDAZOLAM HYDROCHLORIDE
  48. ROMAZICON [Concomitant]
     Active Substance: FLUMAZENIL
  49. FENTANYL [Concomitant]
     Active Substance: FENTANYL
  50. TRANDATE [Concomitant]
     Active Substance: LABETALOL HYDROCHLORIDE
  51. VITAMIN B12 [Concomitant]
     Active Substance: CYANOCOBALAMIN
  52. BYDUREON [Concomitant]
     Active Substance: EXENATIDE
  53. HYDROCORTISONE [Concomitant]
     Active Substance: HYDROCORTISONE
  54. NIZORAL [Concomitant]
     Active Substance: KETOCONAZOLE
  55. FLUCONAZOLE [Concomitant]
     Active Substance: FLUCONAZOLE
  56. PROMETHAZINE [Concomitant]
     Active Substance: PROMETHAZINE HYDROCHLORIDE
  57. ONDANSETRON [Concomitant]
     Active Substance: ONDANSETRON
  58. HYDROMORPHONE [Concomitant]
     Active Substance: HYDROMORPHONE
  59. OXYCODONE AND ACETAMINOPHEN [Concomitant]
     Active Substance: ACETAMINOPHEN\OXYCODONE HYDROCHLORIDE
  60. SODIUM CHLORIDE [Concomitant]
     Active Substance: SODIUM CHLORIDE

REACTIONS (5)
  - Chronic kidney disease [Not Recovered/Not Resolved]
  - End stage renal disease [Not Recovered/Not Resolved]
  - Renal failure [Unknown]
  - Acute kidney injury [Unknown]
  - Gastrooesophageal reflux disease [Not Recovered/Not Resolved]

NARRATIVE: CASE EVENT DATE: 20160101
